FAERS Safety Report 5311698-8 (Version None)
Quarter: 2007Q2

REPORT INFORMATION
  Report Type: 
  Country: None (occurrence: None)
  Receive Date: 20070430
  Receipt Date: 20070416
  Transmission Date: 20071010
  Serious: Yes (Hospitalization)
  Sender: FDA-Public Use
  Company Number: FR-BAYER-200710273BFR

PATIENT
  Age: 58 Year
  Sex: Male

DRUGS (1)
  1. ALEVE [Suspect]
     Indication: HEADACHE
     Route: 048
     Dates: end: 20070124

REACTIONS (4)
  - ABDOMINAL PAIN UPPER [None]
  - AORTIC ANEURYSM [None]
  - PANCREATIC ENZYMES INCREASED [None]
  - PANCREATITIS [None]
